FAERS Safety Report 13303615 (Version 5)
Quarter: 2017Q3

REPORT INFORMATION
  Report Type: Spontaneous
  Country: US (occurrence: US)
  Receive Date: 20170307
  Receipt Date: 20170830
  Transmission Date: 20171127
  Serious: Yes (Hospitalization, Other)
  Sender: FDA-Public Use
  Company Number: US-ACTELION-A-NJ2017-150605

PATIENT
  Age: 36 Year
  Sex: Female

DRUGS (4)
  1. SILDENAFIL. [Concomitant]
     Active Substance: SILDENAFIL
  2. AMBRISENTAN [Suspect]
     Active Substance: AMBRISENTAN
     Indication: PRODUCT USED FOR UNKNOWN INDICATION
     Dosage: 10 MG, QD
     Route: 065
     Dates: start: 20160927
  3. VELETRI [Suspect]
     Active Substance: EPOPROSTENOL
     Dosage: UNK
     Route: 042
     Dates: start: 20170206
  4. VELETRI [Suspect]
     Active Substance: EPOPROSTENOL
     Indication: PULMONARY ARTERIAL HYPERTENSION
     Dosage: 49 NG/KG, PER MIN
     Route: 042
     Dates: start: 20160428

REACTIONS (5)
  - Urticaria [Unknown]
  - Pulmonary arterial hypertension [Unknown]
  - Unevaluable event [Unknown]
  - Pruritus [Not Recovered/Not Resolved]
  - Pericardial effusion [Unknown]

NARRATIVE: CASE EVENT DATE: 20170206
